FAERS Safety Report 11667983 (Version 2)
Quarter: 2015Q4

REPORT INFORMATION
  Report Type: Spontaneous
  Country: US (occurrence: US)
  Receive Date: 20151027
  Receipt Date: 20151027
  Transmission Date: 20160304
  Serious: No
  Sender: FDA-Public Use
  Company Number: US-MYLANLABS-2015M1029061

PATIENT

DRUGS (2)
  1. LOPERAMIDE HYDROCHLORIDE CAPSULES, USP [Suspect]
     Active Substance: LOPERAMIDE HYDROCHLORIDE
     Dosage: 2 MG, 9X
     Route: 048
  2. LOPERAMIDE HYDROCHLORIDE CAPSULES, USP [Suspect]
     Active Substance: LOPERAMIDE HYDROCHLORIDE
     Indication: COLITIS
     Dosage: 2 MG, 9X, QD
     Route: 048
     Dates: start: 20150817, end: 20150823

REACTIONS (1)
  - Drug ineffective [Recovered/Resolved]

NARRATIVE: CASE EVENT DATE: 201508
